FAERS Safety Report 9840289 (Version 3)
Quarter: 2014Q1

REPORT INFORMATION
  Report Type: Spontaneous
  Country: FI (occurrence: FI)
  Receive Date: 20140124
  Receipt Date: 20140225
  Transmission Date: 20141002
  Serious: Yes (Hospitalization, Other)
  Sender: FDA-Public Use
  Company Number: FI-ELI_LILLY_AND_COMPANY-FI201310009709

PATIENT
  Sex: Female

DRUGS (7)
  1. ALIMTA [Suspect]
     Indication: LUNG NEOPLASM MALIGNANT
     Dosage: 800 MG, EVERY 3 WEEKS
     Route: 042
     Dates: start: 20130226
  2. CARBOPLATIN [Suspect]
     Indication: LUNG ADENOCARCINOMA
     Dosage: UNK
     Dates: start: 20130226
  3. FOLIC ACID [Concomitant]
  4. VITAMIN B12                        /00056201/ [Concomitant]
  5. CORTISONE [Concomitant]
  6. NICOTINAMIDUM [Concomitant]
     Route: 062
  7. BISOPROLOL [Concomitant]
     Indication: HYPERTONIA
     Dosage: 10 MG, UNK

REACTIONS (5)
  - Local swelling [Recovered/Resolved]
  - Skin disorder [Recovered/Resolved]
  - Secretion discharge [Recovered/Resolved]
  - Erysipelas [Recovering/Resolving]
  - Malignant neoplasm progression [Unknown]
